FAERS Safety Report 9997778 (Version 1)
Quarter: 2014Q1

REPORT INFORMATION
  Report Type: Spontaneous
  Country: US (occurrence: US)
  Receive Date: 20140311
  Receipt Date: 20140311
  Transmission Date: 20141002
  Serious: No
  Sender: FDA-Public Use
  Company Number: US-PFIZER INC-2014066876

PATIENT
  Sex: Male

DRUGS (4)
  1. NITROSTAT [Suspect]
     Dosage: UNK
  2. NORVASC [Suspect]
     Dosage: UNK
  3. XALATAN [Suspect]
     Dosage: UNK
  4. ZITHROMAX [Suspect]
     Dosage: UNK

REACTIONS (2)
  - Back disorder [Unknown]
  - Gait disturbance [Unknown]
